FAERS Safety Report 6517059-8 (Version None)
Quarter: 2009Q4

REPORT INFORMATION
  Report Type: 
  Country: None (occurrence: None)
  Receive Date: 20091223
  Receipt Date: 20091214
  Transmission Date: 20100525
  Serious: Yes (Hospitalization, Other)
  Sender: FDA-Public Use
  Company Number: BR-ABBOTT-09P-020-0603047-00

PATIENT
  Sex: Female
  Weight: 61 kg

DRUGS (5)
  1. HUMIRA [Suspect]
     Indication: RHEUMATOID ARTHRITIS
     Route: 058
  2. METHOTREXATE [Concomitant]
     Indication: RHEUMATOID ARTHRITIS
     Route: 048
  3. PREDNISOLONE [Concomitant]
     Indication: PAIN
     Route: 048
  4. FOLIC ACID [Concomitant]
     Indication: DRUG USE FOR UNKNOWN INDICATION
     Route: 048
  5. AMITRIPTYLINE [Concomitant]
     Indication: SLEEP DISORDER THERAPY
     Route: 048

REACTIONS (4)
  - ARTHRALGIA [None]
  - ELECTROCARDIOGRAM REPOLARISATION ABNORMALITY [None]
  - GENERALISED OEDEMA [None]
  - OVARIAN CYST [None]
